FAERS Safety Report 8812540 (Version 1)
Quarter: 2012Q4

REPORT INFORMATION
  Report Type: 
  Country: US (occurrence: US)
  Receive Date: 20120927
  Receipt Date: 20120927
  Transmission Date: 20130627
  Serious: No
  Sender: FDA-Public Use
  Company Number: US-VERTEX PHARMACEUTICAL INC.-2012-020326

PATIENT

DRUGS (9)
  1. VX-950 [Suspect]
     Indication: HEPATITIS C
     Dosage: 750 mg, tid
     Route: 048
     Dates: start: 20120703
  2. PEGASYS [Concomitant]
     Indication: HEPATITIS C
     Dosage: 180 mcg, 1x/week
     Route: 058
     Dates: start: 20120703
  3. RIBASPHERE [Concomitant]
     Indication: HEPATITIS C
     Dosage: 600 mg, bid
     Route: 048
     Dates: start: 20120703
  4. AMLODIPINE BESYLATE [Concomitant]
     Dosage: 10 mg, qd
  5. FUROSEMIDE [Concomitant]
     Dosage: 20 mg, qd
  6. PAROXETINE [Concomitant]
     Dosage: 30 mg, qd
  7. LISINOPRIL HCTZ [Concomitant]
     Dosage: 12.75 mg, qd
  8. CLONIDINE HCL [Concomitant]
     Dosage: 0.3 mg, bid
  9. COLCRYS [Concomitant]
     Dosage: 0.6 mg, bid

REACTIONS (1)
  - Mouth ulceration [Unknown]
